FAERS Safety Report 13000862 (Version 1)
Quarter: 2016Q4

REPORT INFORMATION
  Report Type: Spontaneous
  Country: US (occurrence: US)
  Receive Date: 20161206
  Receipt Date: 20161206
  Transmission Date: 20170207
  Serious: Yes (Other)
  Sender: FDA-Public Use
  Company Number: US-CLINIGEN GROUP PLC/ CLINIGEN HEALTHCARE LTD-E2B_00005097

PATIENT
  Age: 39 Year
  Sex: Male
  Weight: 51 kg

DRUGS (4)
  1. AZT [Concomitant]
     Active Substance: ZIDOVUDINE
  2. BACTRIM [Concomitant]
     Active Substance: SULFAMETHOXAZOLE\TRIMETHOPRIM
  3. FOSCAVIR [Suspect]
     Active Substance: FOSCARNET SODIUM
     Indication: CYTOMEGALOVIRUS CHORIORETINITIS
     Dosage: DOSE: 24 MG/ML
  4. GANCICLOVIR. [Concomitant]
     Active Substance: GANCICLOVIR

REACTIONS (1)
  - Rectal ulcer [Unknown]
